FAERS Safety Report 25075573 (Version 1)
Quarter: 2025Q1

REPORT INFORMATION
  Report Type: Spontaneous
  Country: US (occurrence: US)
  Receive Date: 20250313
  Receipt Date: 20250313
  Transmission Date: 20250408
  Serious: No
  Sender: SANOFI AVENTIS
  Company Number: US-SA-2025SA054907

PATIENT
  Age: 8 Year
  Sex: Male

DRUGS (5)
  1. ELOCTATE [Suspect]
     Active Substance: EFMOROCTOCOG ALFA
     Indication: Factor VIII deficiency
     Route: 042
     Dates: start: 201701
  2. ELOCTATE [Suspect]
     Active Substance: EFMOROCTOCOG ALFA
     Indication: Factor VIII deficiency
     Route: 042
     Dates: start: 201701
  3. ELOCTATE [Suspect]
     Active Substance: EFMOROCTOCOG ALFA
     Route: 042
     Dates: start: 201701
  4. ELOCTATE [Suspect]
     Active Substance: EFMOROCTOCOG ALFA
     Route: 042
     Dates: start: 201701
  5. HEMLIBRA [Concomitant]
     Active Substance: EMICIZUMAB-KXWH
     Indication: Prophylaxis

REACTIONS (1)
  - Haemorrhage [Recovered/Resolved]

NARRATIVE: CASE EVENT DATE: 20250201
